FAERS Safety Report 10717480 (Version 1)
Quarter: 2015Q1

REPORT INFORMATION
  Report Type: Spontaneous
  Country: FR (occurrence: FR)
  Receive Date: 20150116
  Receipt Date: 20150116
  Transmission Date: 20150721
  Serious: Yes (Hospitalization)
  Sender: FDA-Public Use
  Company Number: FR-PFIZER INC-2015016585

PATIENT
  Age: 40 Year
  Sex: Female

DRUGS (1)
  1. CYTOTEC [Suspect]
     Active Substance: MISOPROSTOL
     Indication: ABORTION INDUCED

REACTIONS (2)
  - Product use issue [Unknown]
  - Endometritis bacterial [Unknown]

NARRATIVE: CASE EVENT DATE: 20141113
